FAERS Safety Report 5819968-1 (Version None)
Quarter: 2008Q3

REPORT INFORMATION
  Report Type: 
  Country: None (occurrence: None)
  Receive Date: 20080721
  Receipt Date: 20080707
  Transmission Date: 20090109
  Serious: Yes (Hospitalization)
  Sender: FDA-Public Use
  Company Number: 2008AL004330

PATIENT
  Age: 71 Year
  Sex: Female
  Weight: 85.2762 kg

DRUGS (4)
  1. DIGOXIN [Suspect]
     Indication: VENTRICULAR EXTRASYSTOLES
     Dosage: 0.25MG DAILY PO
     Route: 048
  2. ATENOLOL [Concomitant]
  3. VYTORIN [Concomitant]
  4. BENECOR [Concomitant]

REACTIONS (1)
  - ATRIAL FIBRILLATION [None]
